FAERS Safety Report 8238511 (Version 3)
Quarter: 2012Q4

REPORT INFORMATION
  Report Type: 
  Country: US (occurrence: US)
  Receive Date: 20111110
  Receipt Date: 20121212
  Transmission Date: 20130627
  Serious: Yes (Hospitalization, Other)
  Sender: FDA-Public Use
  Company Number: US-BIOGENIDEC-2011BI041545

PATIENT
  Age: 58 Year
  Sex: Female

DRUGS (19)
  1. TYSABRI [Suspect]
     Indication: MULTIPLE SCLEROSIS
     Route: 042
     Dates: start: 20101102
  2. AVONEX [Concomitant]
     Indication: MULTIPLE SCLEROSIS
     Route: 030
     Dates: start: 20040930
  3. ALDACTONE [Concomitant]
  4. AMANTADINE [Concomitant]
  5. CALCIUM SUPPLEMENT WITH VITAMIN D [Concomitant]
  6. DEMADEX [Concomitant]
  7. DILAUDID [Concomitant]
     Indication: PAIN
  8. FLEXERIL [Concomitant]
     Indication: MUSCLE SPASMS
  9. LASIX [Concomitant]
  10. NEURONTIN [Concomitant]
  11. NEXIUM [Concomitant]
  12. NORCO [Concomitant]
     Indication: PAIN
  13. NORCO [Concomitant]
     Indication: BODY TEMPERATURE INCREASED
  14. POTASSIUM CHLORIDE [Concomitant]
  15. PREDNISONE [Concomitant]
  16. PROVIGIL [Concomitant]
  17. SINEMET [Concomitant]
  18. VITAMIN B [Concomitant]
  19. ZOCOR [Concomitant]

REACTIONS (8)
  - Upper respiratory fungal infection [Unknown]
  - Escherichia urinary tract infection [Unknown]
  - Gastrointestinal haemorrhage [Unknown]
  - Oedema peripheral [Unknown]
  - Pneumonia haemophilus [Recovered/Resolved]
  - Leukocytosis [Not Recovered/Not Resolved]
  - Anaemia [Recovered/Resolved]
  - Thrombocytosis [Not Recovered/Not Resolved]
